FAERS Safety Report 14356840 (Version 1)
Quarter: 2018Q1

REPORT INFORMATION
  Report Type: Spontaneous
  Country: SE (occurrence: SE)
  Receive Date: 20180105
  Receipt Date: 20180105
  Transmission Date: 20180509
  Serious: Yes (Other)
  Sender: FDA-Public Use
  Company Number: SE-TEVA-2017-SE-840130

PATIENT
  Age: 77 Year
  Sex: Female

DRUGS (6)
  1. PANTOPRAZOLE [Suspect]
     Active Substance: PANTOPRAZOLE
     Indication: GASTRITIS
  2. PANTOPRAZOLE [Suspect]
     Active Substance: PANTOPRAZOLE
     Indication: COUGH
     Route: 048
     Dates: start: 201711, end: 201711
  3. ATORBIR 40 MG FILMDRAGERAD TABLETT [Concomitant]
  4. ELIQUIS 5 MG FILMDRAGERAD TABLETT [Concomitant]
  5. CANDESARTAN ACTAVIS 4 MG TABLETT [Concomitant]
  6. ALVEDON 665 MG TABLETT MED MODIFIERAD FRIS?TTNING [Concomitant]
     Active Substance: ACETAMINOPHEN
     Dates: start: 20171102

REACTIONS (1)
  - Hypotension [Recovered/Resolved]

NARRATIVE: CASE EVENT DATE: 20171116
